FAERS Safety Report 9053843 (Version 1)
Quarter: 2013Q1

REPORT INFORMATION
  Report Type: Report from Study
  Country: JP (occurrence: JP)
  Receive Date: 20130207
  Receipt Date: 20130207
  Transmission Date: 20140127
  Serious: Yes (Other)
  Sender: FDA-Public Use
  Company Number: JP-GLAXOSMITHKLINE-B0865187A

PATIENT
  Age: 78 None
  Sex: Female
  Weight: 58 kg

DRUGS (4)
  1. TYKERB [Suspect]
     Indication: BREAST CANCER
     Route: 048
     Dates: start: 20100126
  2. XELODA [Concomitant]
     Route: 048
     Dates: start: 20100126, end: 20100406
  3. XELODA [Concomitant]
     Route: 048
     Dates: start: 20100419, end: 20100611
  4. RHEUMATREX [Concomitant]
     Indication: RHEUMATIC DISORDER
     Route: 048
     Dates: end: 20100604

REACTIONS (1)
  - Subdural haematoma [Recovered/Resolved]
